FAERS Safety Report 4484553-3 (Version None)
Quarter: 2004Q3

REPORT INFORMATION
  Report Type: 
  Country: None (occurrence: None)
  Receive Date: 20040921
  Receipt Date: 20040216
  Transmission Date: 20050211
  Serious: Yes (Other)
  Sender: FDA-Public Use
  Company Number: 163-20785-03120047(0)

PATIENT
  Age: 74 Year
  Sex: Female

DRUGS (13)
  1. THALOMID [Suspect]
     Indication: RENAL CELL CARCINOMA STAGE UNSPECIFIED
     Dosage: 200 MG, QHS, ORAL
     Route: 048
     Dates: start: 20020613
  2. NORVASC [Concomitant]
  3. HYDROCHLOROTHIAZIDE [Concomitant]
  4. LOPRESSOR [Concomitant]
  5. COLCHICINE (COLCHICINE) [Concomitant]
  6. ZOLOFT [Concomitant]
  7. SYNTHROID [Concomitant]
  8. PROTONIX [Concomitant]
  9. ACETYLSALICYLIC ACID SRT [Concomitant]
  10. PLAVIX [Concomitant]
  11. K-DUR 10 [Concomitant]
  12. CLONIDINE [Concomitant]
  13. LORTAB [Concomitant]

REACTIONS (1)
  - BRADYCARDIA [None]
